FAERS Safety Report 19081708 (Version 1)
Quarter: 2021Q2

REPORT INFORMATION
  Report Type: Other
  Country: PT (occurrence: PT)
  Receive Date: 20210401
  Receipt Date: 20210401
  Transmission Date: 20210717
  Serious: Yes (Other)
  Sender: FDA-Public Use
  Company Number: PT-ROCHE-2797005

PATIENT

DRUGS (1)
  1. CAPECITABINE. [Suspect]
     Active Substance: CAPECITABINE
     Indication: RECTAL CANCER
     Route: 065

REACTIONS (11)
  - Neutropenia [Unknown]
  - Haematuria [Unknown]
  - Infection [Unknown]
  - Acute kidney injury [Unknown]
  - Nausea [Unknown]
  - Diarrhoea [Unknown]
  - Anaemia [Unknown]
  - Pollakiuria [Unknown]
  - Vomiting [Unknown]
  - Radiation skin injury [Unknown]
  - Dysuria [Unknown]
